FAERS Safety Report 25386493 (Version 1)
Quarter: 2025Q2

REPORT INFORMATION
  Report Type: Spontaneous
  Country: US (occurrence: None)
  Receive Date: 20250602
  Receipt Date: 20250602
  Transmission Date: 20250717
  Serious: No
  Sender: FDA-CTU
  Company Number: None

PATIENT
  Age: 71 Year
  Sex: Male

DRUGS (1)
  1. TRIAMTERENE-HYDROCHLOROTHIAZIDE [Suspect]
     Active Substance: TRIAMTERENE-HYDROCHLOROTHIAZIDE
     Indication: Hypertension
     Route: 048

REACTIONS (3)
  - Pancreatitis acute [None]
  - Constipation [None]
  - Therapy interrupted [None]

NARRATIVE: CASE EVENT DATE: 20250417
